FAERS Safety Report 8059321-6 (Version None)
Quarter: 2012Q1

REPORT INFORMATION
  Report Type: 
  Country: None (occurrence: None)
  Receive Date: 20120112
  Receipt Date: 20111227
  Transmission Date: 20120608
  Serious: Yes (Hospitalization)
  Sender: FDA-Public Use
  Company Number: 2011NA000115

PATIENT
  Age: 67 Year
  Sex: Male

DRUGS (2)
  1. METHOTREXATE [Suspect]
     Indication: RHEUMATOID ARTHRITIS
     Dosage: 25 MG;QW;SC
     Route: 058
  2. DICLOFENAC SODIUM [Suspect]
     Indication: RHEUMATOID ARTHRITIS

REACTIONS (4)
  - BONE MARROW FAILURE [None]
  - SKIN ULCER [None]
  - SKIN FIBROSIS [None]
  - SMALL INTESTINAL OBSTRUCTION [None]
